FAERS Safety Report 9123003 (Version 1)
Quarter: 2013Q1

REPORT INFORMATION
  Report Type: Report from Study
  Country: IT (occurrence: IT)
  Receive Date: 20130115
  Receipt Date: 20130115
  Transmission Date: 20140127
  Serious: Yes (Other)
  Sender: FDA-Public Use
  Company Number: IT-BIOMARINAP-IT-2013-100109

PATIENT
  Sex: 0

DRUGS (1)
  1. KUVAN [Suspect]
     Indication: PHENYLKETONURIA
     Dosage: 80 MG, QD
     Route: 048
     Dates: start: 20121106, end: 20121130

REACTIONS (1)
  - Overdose [Recovered/Resolved]
